FAERS Safety Report 15223653 (Version 1)
Quarter: 2018Q3

REPORT INFORMATION
  Report Type: Spontaneous
  Country: US (occurrence: US)
  Receive Date: 20180705
  Receipt Date: 20180705
  Transmission Date: 20181010
  Serious: Yes (Other)
  Sender: FDA-Public Use
  Company Number: None

PATIENT
  Age: 74 Year
  Sex: Male
  Weight: 67.5 kg

DRUGS (1)
  1. CIPRODEX [Suspect]
     Active Substance: CIPROFLOXACIN HYDROCHLORIDE\DEXAMETHASONE
     Indication: EAR INFECTION
     Dosage: ?          QUANTITY:4 DROP(S);?
     Route: 001
     Dates: start: 20180620, end: 20180620

REACTIONS (2)
  - Heart rate increased [None]
  - Chills [None]

NARRATIVE: CASE EVENT DATE: 20180620
